FAERS Safety Report 9034517 (Version 2)
Quarter: 2013Q1

REPORT INFORMATION
  Report Type: Spontaneous
  Country: GB (occurrence: GB)
  Receive Date: 20130129
  Receipt Date: 20130313
  Transmission Date: 20140127
  Serious: Yes (Death, Other)
  Sender: FDA-Public Use
  Company Number: GB-AMGEN-GBRSP2013005468

PATIENT
  Age: 49 Year
  Sex: Female
  Weight: 77 kg

DRUGS (1)
  1. NPLATE [Suspect]
     Indication: IDIOPATHIC THROMBOCYTOPENIC PURPURA
     Dosage: UNK

REACTIONS (17)
  - Cardiac failure [Fatal]
  - Myocardial fibrosis [Fatal]
  - Myocarditis [Fatal]
  - Bronchopneumonia [Unknown]
  - Hepatic necrosis [Unknown]
  - Adenoma benign [Unknown]
  - Haemorrhage [Unknown]
  - Osteonecrosis [Unknown]
  - Renal failure acute [Unknown]
  - Thyroid atrophy [Unknown]
  - Autoimmune thyroiditis [Unknown]
  - Hepatic steatosis [Unknown]
  - Megakaryocytes increased [Unknown]
  - Inflammation [Unknown]
  - Granuloma [Unknown]
  - Scar [Unknown]
  - Adhesion [Unknown]
